FAERS Safety Report 18906402 (Version 1)
Quarter: 2021Q1

REPORT INFORMATION
  Report Type: Spontaneous
  Country: US (occurrence: US)
  Receive Date: 20210217
  Receipt Date: 20210217
  Transmission Date: 20210420
  Serious: No
  Sender: FDA-Public Use
  Company Number: US-009507513-2102USA005029

PATIENT
  Age: 45 Year
  Sex: Male

DRUGS (2)
  1. NOXAFIL [Suspect]
     Active Substance: POSACONAZOLE
     Indication: BODY TINEA
     Dosage: 300 MILLIGRAM DAILY
  2. NOXAFIL [Suspect]
     Active Substance: POSACONAZOLE
     Indication: TRICHOPHYTOSIS

REACTIONS (1)
  - Off label use [Unknown]
